FAERS Safety Report 9314163 (Version 1)
Quarter: 2013Q2

REPORT INFORMATION
  Report Type: Spontaneous
  Country: US (occurrence: None)
  Receive Date: 20130524
  Receipt Date: 20130524
  Transmission Date: 20140414
  Serious: Yes (Other)
  Sender: FDA-Public Use
  Company Number: None

PATIENT
  Age: 64 Year
  Sex: Female
  Weight: 75.75 kg

DRUGS (2)
  1. OMEPRAZOLE [Suspect]
     Indication: DYSPEPSIA
     Dosage: ONCE CAPSULE, TWICE, BY MOUTH
     Route: 048
     Dates: start: 201210, end: 20130427
  2. ZETIA [Suspect]
     Indication: BLOOD CHOLESTEROL INCREASED
     Dosage: ONE TABLET, ONCE AT BEDTIME, BY MOUTH
     Route: 048
     Dates: start: 201212, end: 20130510

REACTIONS (9)
  - Abdominal pain upper [None]
  - Flatulence [None]
  - Diarrhoea [None]
  - Pain [None]
  - Abdominal distension [None]
  - Asthenia [None]
  - Malaise [None]
  - Abdominal pain [None]
  - Haematochezia [None]
